FAERS Safety Report 24212895 (Version 1)
Quarter: 2024Q3

REPORT INFORMATION
  Report Type: Spontaneous
  Country: JP (occurrence: JP)
  Receive Date: 20240815
  Receipt Date: 20240815
  Transmission Date: 20241016
  Serious: Yes (Other)
  Sender: CHEPLAPHARM
  Company Number: JP-MLMSERVICE-20240711-PI126274-00255-3

PATIENT
  Age: 35 Year
  Sex: Male

DRUGS (10)
  1. PACLITAXEL [Suspect]
     Active Substance: PACLITAXEL
     Indication: Testicular germ cell tumour
     Dosage: ON DAY 1
  2. ETOPOSIDE [Suspect]
     Active Substance: ETOPOSIDE
     Indication: Respiratory failure
     Dosage: DAYS 1?3
  3. ETOPOSIDE [Suspect]
     Active Substance: ETOPOSIDE
     Indication: Testicular germ cell tumour
     Dosage: DAYS 1?3
  4. ETOPOSIDE [Suspect]
     Active Substance: ETOPOSIDE
     Indication: Respiratory failure
     Dosage: DAYS 1?5
  5. ETOPOSIDE [Suspect]
     Active Substance: ETOPOSIDE
     Indication: Testicular germ cell tumour
     Dosage: DAYS 1?5
  6. CISPLATIN [Suspect]
     Active Substance: CISPLATIN
     Indication: Testicular germ cell tumour
     Dosage: ON DAYS 1?3
  7. CISPLATIN [Suspect]
     Active Substance: CISPLATIN
     Indication: Testicular germ cell tumour
     Dosage: ON DAYS 1?5 WITH ETOPOSIDE
  8. CISPLATIN [Suspect]
     Active Substance: CISPLATIN
     Indication: Testicular germ cell tumour
     Dosage: ON DAYS 1?5 WITH PACLITAXEL,
  9. IFOSFAMIDE [Suspect]
     Active Substance: IFOSFAMIDE
     Indication: Testicular germ cell tumour
     Dosage: ON DAYS 1?5 WITH PACLITAXEL,
  10. IFOSFAMIDE [Suspect]
     Active Substance: IFOSFAMIDE
     Indication: Testicular germ cell tumour
     Dosage: ON DAYS 1?5 WITH ETOPOSIDE,

REACTIONS (5)
  - Seizure [Unknown]
  - Loss of consciousness [Unknown]
  - Off label use [Unknown]
  - Respiratory failure [Unknown]
  - Respiratory tract haemorrhage [Unknown]
